FAERS Safety Report 26001851 (Version 1)
Quarter: 2025Q4

REPORT INFORMATION
  Report Type: Spontaneous
  Country: US (occurrence: None)
  Receive Date: 20251105
  Receipt Date: 20251105
  Transmission Date: 20260118
  Serious: No
  Sender: FDA-CTU
  Company Number: None

PATIENT
  Age: 51 Year
  Sex: Female

DRUGS (1)
  1. SKYRIZI [Suspect]
     Active Substance: RISANKIZUMAB-RZAA
     Indication: Prostatic specific antigen
     Dosage: 150 MG/ML EVERY 12 WEEKS SUBCUTANEOUS?
     Route: 058

REACTIONS (5)
  - Drug ineffective [None]
  - Laboratory test abnormal [None]
  - C-reactive protein increased [None]
  - Red blood cell sedimentation rate increased [None]
  - Arthralgia [None]

NARRATIVE: CASE EVENT DATE: 20250901
